FAERS Safety Report 8898677 (Version 3)
Quarter: 2013Q1

REPORT INFORMATION
  Report Type: Spontaneous
  Country: US (occurrence: US)
  Receive Date: 20121109
  Receipt Date: 20130109
  Transmission Date: 20140127
  Serious: Yes (Other)
  Sender: FDA-Public Use
  Company Number: US-BAYER-2012-115549

PATIENT
  Age: 22 Year
  Sex: Female
  Weight: 114.74 kg

DRUGS (10)
  1. YAZ [Suspect]
     Indication: PREMENSTRUAL DYSPHORIC DISORDER
     Dosage: UNK
     Dates: start: 20090901, end: 201002
  2. TYLENOL [Concomitant]
  3. CEPHALEXIN [Concomitant]
     Dosage: 500 MG, 1 CAPSULE, BID
     Route: 048
  4. CLOTRIMAZOLE [Concomitant]
     Dosage: ONE APPLICATOR FULL, HS
     Route: 067
  5. CLOTRIM BETA [Concomitant]
     Dosage: UNK UNK, BID
  6. NYSTOP [Concomitant]
     Dosage: UNK UNK, BID
     Route: 061
  7. IBUPROFEN [Concomitant]
     Indication: PAIN
     Dosage: 1 TABLET EVERY 8 HOURS, PRN
     Route: 048
  8. ACETAMINOPHEN W/CODEINE [Concomitant]
     Indication: PAIN
     Dosage: 1 TABLET EVERY 6 HOURS, PRN
     Route: 048
  9. AMOXICILLIN CLAVULANATE [Concomitant]
     Dosage: 1 TABLET, BID
     Route: 048
  10. NAPROXEN [Concomitant]

REACTIONS (9)
  - Deep vein thrombosis [None]
  - Thrombophlebitis superficial [Recovered/Resolved]
  - Pain [None]
  - Injury [None]
  - General physical health deterioration [None]
  - Anxiety [None]
  - Anhedonia [None]
  - Emotional distress [None]
  - Pain [None]
